FAERS Safety Report 23155920 (Version 1)
Quarter: 2023Q4

REPORT INFORMATION
  Report Type: Spontaneous
  Country: JP (occurrence: JP)
  Receive Date: 20231107
  Receipt Date: 20231107
  Transmission Date: 20240110
  Serious: No
  Sender: FDA-Public Use
  Company Number: JP-SCALL-2023-011435

PATIENT
  Age: 75 Year
  Sex: Male

DRUGS (7)
  1. DUTASTERIDE [Suspect]
     Active Substance: DUTASTERIDE
     Route: 048
     Dates: start: 20221229
  2. tamsulosin hydrochloride (Harnal D) [Concomitant]
  3. metformin hydrochloride (Metgluco) [Concomitant]
  4. sitagliptin?phosphate (Januvia (Sitagliptin Phosphate Hydrate)) [Concomitant]
  5. benzbromarone (Urinorm (Benzbromarone)) [Concomitant]
  6. candesartan cilexetil?(Blopress) [Concomitant]
  7. SENNOSIDES (SENNOSIDES) [Concomitant]
     Active Substance: SENNOSIDES

REACTIONS (1)
  - Anal fissure [Unknown]
